FAERS Safety Report 6237743-3 (Version None)
Quarter: 2009Q2

REPORT INFORMATION
  Report Type: 
  Country: None (occurrence: None)
  Receive Date: 20090618
  Receipt Date: 20090611
  Transmission Date: 20091009
  Serious: Yes (Other)
  Sender: FDA-Public Use
  Company Number: CHPA2009US13376

PATIENT
  Age: 50 Year
  Sex: Female
  Weight: 47.6 kg

DRUGS (1)
  1. VOLTAREN [Suspect]
     Indication: ARTHRALGIA
     Dosage: 4 G, QD, TOPICAL
     Route: 061
     Dates: start: 20090610

REACTIONS (2)
  - DIZZINESS [None]
  - VISION BLURRED [None]
